FAERS Safety Report 7811625-5 (Version None)
Quarter: 2011Q4

REPORT INFORMATION
  Report Type: 
  Country: None (occurrence: None)
  Receive Date: 20111013
  Receipt Date: 20111004
  Transmission Date: 20120403
  Serious: Yes (Other)
  Sender: FDA-Public Use
  Company Number: US-US-EMD SERONO, INC.-7085857

PATIENT
  Sex: Female
  Weight: 54 kg

DRUGS (2)
  1. REQUIP XL [Concomitant]
     Indication: RESTLESS LEGS SYNDROME
  2. REBIF [Suspect]
     Indication: RELAPSING-REMITTING MULTIPLE SCLEROSIS
     Dates: start: 20100924, end: 20110811

REACTIONS (1)
  - CEREBROVASCULAR ACCIDENT [None]
